FAERS Safety Report 8235050-0 (Version None)
Quarter: 2012Q1

REPORT INFORMATION
  Report Type: 
  Country: None (occurrence: None)
  Receive Date: 20120326
  Receipt Date: 20120319
  Transmission Date: 20120608
  Serious: Yes (Hospitalization)
  Sender: FDA-Public Use
  Company Number: BR-GLAXOSMITHKLINE-A0971035A

PATIENT
  Sex: Female
  Weight: 53 kg

DRUGS (1)
  1. CEFUROXIME [Suspect]
     Indication: DIARRHOEA
     Dosage: 250MG SINGLE DOSE
     Route: 048
     Dates: start: 20120316, end: 20120316

REACTIONS (4)
  - VOMITING [None]
  - DIARRHOEA [None]
  - PRODUCT QUALITY ISSUE [None]
  - SKIN DISORDER [None]
